FAERS Safety Report 6649763-5 (Version None)
Quarter: 2010Q1

REPORT INFORMATION
  Report Type: 
  Country: None (occurrence: None)
  Receive Date: 20100322
  Receipt Date: 20100308
  Transmission Date: 20100710
  Serious: Yes (Death, Other)
  Sender: FDA-Public Use
  Company Number: KADN20100063

PATIENT
  Age: 38 Year
  Sex: Male
  Weight: 131.5431 kg

DRUGS (2)
  1. MORPHINE [Suspect]
     Dosage: INGESTION/PARENTERAL
     Dates: end: 20080101
  2. ETHANOL [Suspect]
     Dosage: INGESTION/PARENTERAL
     Dates: end: 20080101

REACTIONS (8)
  - ACCIDENT [None]
  - ALCOHOL POISONING [None]
  - DRUG TOXICITY [None]
  - FALL [None]
  - INTENTIONAL DRUG MISUSE [None]
  - POISONING [None]
  - PULMONARY CONGESTION [None]
  - PULMONARY OEDEMA [None]
